FAERS Safety Report 5855753-2 (Version None)
Quarter: 2008Q3

REPORT INFORMATION
  Report Type: 
  Country: None (occurrence: None)
  Receive Date: 20080825
  Receipt Date: 20080818
  Transmission Date: 20090109
  Serious: Yes (Hospitalization)
  Sender: FDA-Public Use
  Company Number: CH-JNJFOC-20080803552

PATIENT
  Age: 39 Year
  Sex: Female

DRUGS (7)
  1. HALOPERIDOL [Suspect]
     Indication: AGITATION
     Route: 030
  2. HALOPERIDOL [Suspect]
     Indication: RESTLESSNESS
     Route: 030
  3. PROMAZINE HYDROCHLORIDE [Suspect]
     Indication: AGITATION
     Route: 030
  4. PROMAZINE HYDROCHLORIDE [Suspect]
     Indication: RESTLESSNESS
     Route: 030
  5. BROMAZEPAM [Suspect]
     Indication: ANXIETY DISORDER
     Route: 048
  6. TRAMADOL HCL [Suspect]
     Indication: DRUG USE FOR UNKNOWN INDICATION
     Route: 048
  7. ZOLPIDEM [Concomitant]
     Indication: SLEEP DISORDER
     Route: 048

REACTIONS (2)
  - BRADYPNOEA [None]
  - RESPIRATORY ACIDOSIS [None]
